FAERS Safety Report 4459356-6 (Version None)
Quarter: 2004Q3

REPORT INFORMATION
  Report Type: 
  Country: None (occurrence: None)
  Receive Date: 20040927
  Receipt Date: 20040810
  Transmission Date: 20050211
  Serious: Yes (Other)
  Sender: FDA-Public Use
  Company Number: GB-BRISTOL-MYERS SQUIBB COMPANY-12665162

PATIENT
  Age: 66 Year
  Sex: Female

DRUGS (3)
  1. IRBESARTAN TABS [Suspect]
     Indication: HYPERTENSION
     Route: 048
     Dates: start: 20030627, end: 20040430
  2. BENDROFLUAZIDE [Concomitant]
     Route: 048
  3. FYBOGEL [Concomitant]
     Dosage: 1 SACT OD
     Route: 048
     Dates: start: 20000101

REACTIONS (1)
  - HYPERTROPHY BREAST [None]
